FAERS Safety Report 20429704 (Version 5)
Quarter: 2023Q2

REPORT INFORMATION
  Report Type: Report from Study
  Country: US (occurrence: US)
  Receive Date: 20220204
  Receipt Date: 20230425
  Transmission Date: 20230721
  Serious: Yes (Hospitalization, Other)
  Sender: FDA-Public Use
  Company Number: US-VERTEX PHARMACEUTICALS-2020-020639

PATIENT
  Sex: Female

DRUGS (27)
  1. TRIKAFTA [Suspect]
     Active Substance: ELEXACAFTOR\IVACAFTOR\TEZACAFTOR
     Indication: Cystic fibrosis
     Dosage: 2 ORANGE TABLETS EVERY OTHER DAY, 1 BLUE TABLET EVERY OTHER DAY ALTERNATING WITH ORANGE TABLETS
     Route: 048
     Dates: start: 20191217, end: 20201211
  2. TRIKAFTA [Suspect]
     Active Substance: ELEXACAFTOR\IVACAFTOR\TEZACAFTOR
     Dosage: 2 ORANGE TABS IN AM AND 1 BLUE TAB IN PM
     Route: 048
     Dates: start: 20220707, end: 20220730
  3. ALBUTEROL SULFATE [Concomitant]
     Active Substance: ALBUTEROL SULFATE
  4. AMITIZA [Concomitant]
     Active Substance: LUBIPROSTONE
  5. AZITHROMYCIN [Concomitant]
     Active Substance: AZITHROMYCIN
  6. BISACODYL [Concomitant]
     Active Substance: BISACODYL
  7. CREON [Concomitant]
     Active Substance: PANCRELIPASE AMYLASE\PANCRELIPASE LIPASE\PANCRELIPASE PROTEASE
  8. ERYTHROMYCIN [Concomitant]
     Active Substance: ERYTHROMYCIN
  9. FLOVENT HFA [Concomitant]
     Active Substance: FLUTICASONE PROPIONATE
  10. SENNA ALATA WHOLE [Concomitant]
     Active Substance: SENNA ALATA WHOLE
  11. SODIUM CHLORIDE [Concomitant]
     Active Substance: SODIUM CHLORIDE
  12. OMEPRAZOLE [Concomitant]
     Active Substance: OMEPRAZOLE
  13. MIRALAX [Concomitant]
     Active Substance: POLYETHYLENE GLYCOL 3350
  14. PULMOZYME [Concomitant]
     Active Substance: DORNASE ALFA
  15. URSODIOL [Concomitant]
     Active Substance: URSODIOL
  16. SENOKOT [Concomitant]
     Active Substance: SENNOSIDES
  17. SODIUM CHLORIDE [Concomitant]
     Active Substance: SODIUM CHLORIDE
  18. VITAMIN D [Concomitant]
     Active Substance: VITAMIN D NOS
  19. SENNA [Concomitant]
     Active Substance: SENNA LEAF\SENNOSIDES\SENNOSIDES A AND B
  20. BUDESONIDE [Concomitant]
     Active Substance: BUDESONIDE
  21. TOBI [Concomitant]
     Active Substance: TOBRAMYCIN
  22. CAYSTON [Concomitant]
     Active Substance: AZTREONAM
  23. BUSPIRONE [Concomitant]
     Active Substance: BUSPIRONE HYDROCHLORIDE
  24. MELATONIN [Concomitant]
     Active Substance: MELATONIN
  25. OLANZAPINE [Concomitant]
     Active Substance: OLANZAPINE
  26. PROPRANOLOL [Concomitant]
     Active Substance: PROPRANOLOL HYDROCHLORIDE
  27. FLUOXETINE [Concomitant]
     Active Substance: FLUOXETINE HYDROCHLORIDE

REACTIONS (12)
  - Depression [Not Recovered/Not Resolved]
  - Anxiety [Recovering/Resolving]
  - Suicide attempt [Recovering/Resolving]
  - Suicidal ideation [Not Recovered/Not Resolved]
  - Self-injurious ideation [Recovering/Resolving]
  - Pulmonary function test decreased [Not Recovered/Not Resolved]
  - Infective pulmonary exacerbation of cystic fibrosis [Recovering/Resolving]
  - Air embolism [Recovering/Resolving]
  - Coma [Recovering/Resolving]
  - Eating disorder [Recovering/Resolving]
  - Obsessive-compulsive disorder [Unknown]
  - Anger [Unknown]

NARRATIVE: CASE EVENT DATE: 20200101
